FAERS Safety Report 10059254 (Version 1)
Quarter: 2014Q2

REPORT INFORMATION
  Report Type: Spontaneous
  Country: DE (occurrence: DE)
  Receive Date: 20140404
  Receipt Date: 20140404
  Transmission Date: 20141212
  Serious: Yes (Other)
  Sender: FDA-Public Use
  Company Number: DE-JNJFOC-20140401811

PATIENT
  Age: 80 Year
  Sex: Male

DRUGS (11)
  1. XARELTO [Suspect]
     Indication: CEREBROVASCULAR ACCIDENT PROPHYLAXIS
     Route: 048
  2. XARELTO [Suspect]
     Indication: ATRIAL FIBRILLATION
     Route: 048
  3. BISOPROLOL [Concomitant]
     Route: 065
  4. CANDESARTAN [Concomitant]
     Route: 065
  5. MARCUMAR [Concomitant]
     Route: 065
  6. OMEPRAZOLE [Concomitant]
     Route: 065
  7. HYDROCORTISON [Concomitant]
     Route: 065
  8. MCP [Concomitant]
     Dosage: 25 (UNITS UNSPECIFIED)
     Route: 065
  9. KALINOR (POTASSIUM BICARBONATE, POTASSIUM CITRATE) [Concomitant]
     Route: 065
  10. SIMVAHEXAL [Concomitant]
     Route: 065
  11. TORASEMID [Concomitant]
     Route: 065

REACTIONS (2)
  - Anuria [Recovered/Resolved]
  - Blood creatinine increased [Recovered/Resolved]
